FAERS Safety Report 13655505 (Version 5)
Quarter: 2019Q3

REPORT INFORMATION
  Report Type: Spontaneous
  Country: US (occurrence: US)
  Receive Date: 20170615
  Receipt Date: 20190905
  Transmission Date: 20191004
  Serious: No
  Sender: FDA-Public Use
  Company Number: US-PFIZER INC-2017255677

PATIENT
  Age: 65 Year
  Sex: Female
  Weight: 54.42 kg

DRUGS (6)
  1. EFFEXOR XR [Suspect]
     Active Substance: VENLAFAXINE HYDROCHLORIDE
     Dosage: UNK
  2. ACETAMINOPHEN;HYDROCODONE [Suspect]
     Active Substance: ACETAMINOPHEN\HYDROCODONE
     Dosage: UNK
  3. HYDROCODONE [Suspect]
     Active Substance: HYDROCODONE
     Dosage: UNK
  4. TRAMADOL. [Suspect]
     Active Substance: TRAMADOL
     Dosage: UNK
  5. AUGMENTIN [Suspect]
     Active Substance: AMOXICILLIN\CLAVULANATE POTASSIUM
     Dosage: UNK
  6. NUBAIN [Suspect]
     Active Substance: NALBUPHINE HYDROCHLORIDE
     Dosage: UNK

REACTIONS (2)
  - Pruritus [Unknown]
  - Drug hypersensitivity [Unknown]
